FAERS Safety Report 6431491-2 (Version None)
Quarter: 2009Q4

REPORT INFORMATION
  Report Type: 
  Country: None (occurrence: None)
  Receive Date: 20091106
  Receipt Date: 20091029
  Transmission Date: 20100525
  Serious: Yes (Other)
  Sender: FDA-Public Use
  Company Number: BR-ABBOTT-08P-020-0454638-00

PATIENT
  Sex: Female
  Weight: 72 kg

DRUGS (7)
  1. HUMIRA [Suspect]
     Indication: RHEUMATOID ARTHRITIS
     Route: 058
     Dates: start: 20050101
  2. HUMIRA [Suspect]
  3. INDAPAMIDE W/PERINDOPRIL [Concomitant]
     Indication: HYPERTENSION
     Dosage: 1 TAB PER DAY IN MORNING
     Route: 048
     Dates: start: 20060101
  4. METHOTREXATE [Concomitant]
     Indication: RHEUMATOID ARTHRITIS
     Route: 048
     Dates: start: 20060101
  5. METHOTREXATE [Concomitant]
     Route: 048
  6. OSCAL [Concomitant]
     Indication: BLOOD CALCIUM
     Route: 048
  7. BONALEN [Concomitant]
     Indication: BLOOD CALCIUM
     Route: 048

REACTIONS (4)
  - ANAEMIA [None]
  - BONE EROSION [None]
  - PAIN IN EXTREMITY [None]
  - WEIGHT DECREASED [None]
